FAERS Safety Report 24808187 (Version 1)
Quarter: 2025Q1

REPORT INFORMATION
  Report Type: Spontaneous
  Country: MX (occurrence: MX)
  Receive Date: 20250106
  Receipt Date: 20250106
  Transmission Date: 20250409
  Serious: Yes (Death, Hospitalization)
  Sender: NOVO NORDISK
  Company Number: MX-NOVOPROD-1344220

PATIENT
  Age: 42 Year
  Sex: Male
  Weight: 68 kg

DRUGS (2)
  1. NOVOEIGHT [Suspect]
     Active Substance: ANTIHEMOPHILIC FACTOR, HUMAN RECOMBINANT
     Indication: Factor VIII deficiency
     Route: 042
     Dates: end: 20241211
  2. OMEPRAZOLE [Concomitant]
     Active Substance: OMEPRAZOLE
     Indication: Abdominal pain upper
     Route: 048

REACTIONS (2)
  - Haematemesis [Fatal]
  - Spontaneous haemorrhage [Fatal]
